FAERS Safety Report 12145439 (Version 1)
Quarter: 2016Q1

REPORT INFORMATION
  Report Type: Spontaneous
  Country: US (occurrence: US)
  Receive Date: 20160304
  Receipt Date: 20160304
  Transmission Date: 20160526
  Serious: Yes (Other)
  Sender: FDA-Public Use
  Company Number: US-ASTRAZENECA-2016SE20887

PATIENT
  Age: 75 Year
  Sex: Male

DRUGS (1)
  1. MOVANTIK [Suspect]
     Active Substance: NALOXEGOL OXALATE
     Indication: CONSTIPATION
     Route: 048

REACTIONS (9)
  - Pain in extremity [Unknown]
  - Abdominal pain upper [Unknown]
  - Hypoglycaemia [Unknown]
  - Abdominal pain [Unknown]
  - Tarsal tunnel syndrome [Unknown]
  - Abdominal distension [Unknown]
  - Cluster headache [Unknown]
  - Movement disorder [Unknown]
  - Flatulence [Unknown]
